FAERS Safety Report 5592736-4 (Version None)
Quarter: 2007Q4

REPORT INFORMATION
  Report Type: 
  Country: None (occurrence: None)
  Receive Date: 20071217
  Receipt Date: 20071011
  Transmission Date: 20080405
  Serious: No
  Sender: FDA-Public Use
  Company Number: BDI-010338

PATIENT
  Age: 60 Year
  Sex: Male
  Weight: 70 kg

DRUGS (4)
  1. MULTIHANCE [Suspect]
     Indication: MUSCULAR WEAKNESS
     Dosage: 15 ML ONCE IV
     Route: 042
     Dates: start: 20071010, end: 20071010
  2. MULTIHANCE [Suspect]
     Indication: NUCLEAR MAGNETIC RESONANCE IMAGING BRAIN
     Dosage: 15 ML ONCE IV
     Route: 042
     Dates: start: 20071010, end: 20071010
  3. MULTIHANCE [Suspect]
     Indication: PARAESTHESIA
     Dosage: 15 ML ONCE IV
     Route: 042
     Dates: start: 20071010, end: 20071010
  4. DIOVAN /01319601/ [Concomitant]

REACTIONS (2)
  - NAUSEA [None]
  - VOMITING [None]
